FAERS Safety Report 7084058-X (Version None)
Quarter: 2010Q4

REPORT INFORMATION
  Report Type: 
  Country: None (occurrence: None)
  Receive Date: 20101026
  Receipt Date: 20101018
  Transmission Date: 20110411
  Serious: Yes (Other)
  Sender: FDA-Public Use
  Company Number: 2010SP054297

PATIENT
  Age: 60 Year
  Sex: Male

DRUGS (1)
  1. INTEGRILIN [Suspect]
     Indication: PRODUCT USED FOR UNKNOWN INDICATION

REACTIONS (3)
  - ERYTHEMA [None]
  - HYPERHIDROSIS [None]
  - URTICARIA [None]
